FAERS Safety Report 24652928 (Version 2)
Quarter: 2024Q4

REPORT INFORMATION
  Report Type: Report from Study
  Country: US (occurrence: US)
  Receive Date: 20241122
  Receipt Date: 20241203
  Transmission Date: 20250114
  Serious: Yes (Hospitalization, Other)
  Sender: ALEXION PHARMACEUTICALS
  Company Number: US-AstraZeneca-CH-00629582A

PATIENT

DRUGS (2)
  1. ULTOMIRIS [Suspect]
     Active Substance: RAVULIZUMAB-CWVZ
     Indication: Myasthenia gravis
     Dosage: UNK
  2. PYRIDOSTIGMINE [Suspect]
     Active Substance: PYRIDOSTIGMINE
     Dosage: UNK, BID
     Route: 065

REACTIONS (12)
  - Myasthenia gravis [Unknown]
  - Atrial fibrillation [Unknown]
  - Heart rate decreased [Unknown]
  - Hernia [Unknown]
  - Cellulitis [Unknown]
  - Blood pressure decreased [Unknown]
  - Incision site discomfort [Unknown]
  - Oedema peripheral [Unknown]
  - Heart rate increased [Unknown]
  - Therapeutic response shortened [Unknown]
  - Lethargy [Unknown]
  - Asthenia [Unknown]
